FAERS Safety Report 8351195-9 (Version None)
Quarter: 2012Q2

REPORT INFORMATION
  Report Type: 
  Country: None (occurrence: None)
  Receive Date: 20120510
  Receipt Date: 20120502
  Transmission Date: 20120825
  Serious: Yes (Hospitalization)
  Sender: FDA-Public Use
  Company Number: FI-GILEAD-2012-0054726

PATIENT
  Sex: Female

DRUGS (15)
  1. ZERIT [Concomitant]
     Indication: HIV INFECTION
     Dosage: UNK
     Dates: start: 20040802, end: 20040901
  2. AZT [Concomitant]
     Indication: HIV INFECTION
     Dosage: UNK
     Dates: start: 20040901, end: 20041222
  3. RIFABUTIN [Concomitant]
     Indication: MYCOBACTERIUM AVIUM COMPLEX INFECTION
  4. FLUCONAZOLE [Concomitant]
     Indication: CANDIDIASIS
  5. EMTRICITABINE [Concomitant]
     Dosage: UNK
     Dates: start: 20040901, end: 20041222
  6. AZITHROMYCIN [Concomitant]
     Indication: MYCOBACTERIUM AVIUM COMPLEX INFECTION
  7. VIREAD [Suspect]
     Indication: HIV INFECTION
     Dosage: UNK
     Dates: start: 20020101, end: 20041222
  8. EFAVIRENZ [Concomitant]
     Indication: HIV INFECTION
     Dosage: UNK
     Dates: start: 20040802, end: 20040901
  9. KALETRA [Concomitant]
     Indication: HIV INFECTION
     Dosage: UNK
     Dates: start: 20050109
  10. FUZEON [Concomitant]
     Dosage: UNK
     Dates: start: 20040901, end: 20041222
  11. EMTRICITABINE [Concomitant]
     Indication: HIV INFECTION
     Dosage: UNK
     Dates: start: 20050109
  12. KALETRA [Concomitant]
     Dosage: UNK
     Dates: start: 20040802, end: 20040901
  13. ETAMBUTOL                          /00022301/ [Concomitant]
     Indication: MYCOBACTERIUM AVIUM COMPLEX INFECTION
  14. INSULIN [Concomitant]
     Indication: TYPE 2 DIABETES MELLITUS
  15. FUZEON [Concomitant]
     Indication: HIV INFECTION
     Dosage: UNK
     Dates: start: 20050109

REACTIONS (1)
  - RENAL TUBULAR ACIDOSIS [None]
